FAERS Safety Report 5830574-5 (Version None)
Quarter: 2008Q3

REPORT INFORMATION
  Report Type: 
  Country: None (occurrence: None)
  Receive Date: 20080801
  Receipt Date: 20070725
  Transmission Date: 20090109
  Serious: No
  Sender: FDA-Public Use
  Company Number: US-BRISTOL-MYERS SQUIBB COMPANY-13857107

PATIENT
  Age: 73 Year
  Sex: Male
  Weight: 92 kg

DRUGS (13)
  1. COUMADIN [Suspect]
     Indication: ATRIAL FIBRILLATION
     Dosage: DOSAGE FORM = 5.5 MG DAILY- MON, WED AND FRI 5.0 MG- TUES, THURS, SAT AND SUN
     Route: 048
     Dates: start: 20070301
  2. MAGNESIUM OXIDE [Concomitant]
  3. ALLOPURINOL [Concomitant]
  4. SIMVASTATIN [Concomitant]
  5. ATENOLOL [Concomitant]
  6. PREDNISONE [Concomitant]
  7. CYCLOSPORINE [Concomitant]
  8. OMEPRAZOLE [Concomitant]
  9. CALCIUM + VITAMIN D [Concomitant]
  10. BENADRYL [Concomitant]
  11. ASCORBIC ACID [Concomitant]
  12. FUROSEMIDE [Concomitant]
  13. LOSARTAN POTASSIUM [Concomitant]

REACTIONS (3)
  - FALL [None]
  - SKIN DISCOLOURATION [None]
  - WOUND INFECTION [None]
